FAERS Safety Report 16237930 (Version 1)
Quarter: 2019Q2

REPORT INFORMATION
  Report Type: Spontaneous
  Country: US (occurrence: US)
  Receive Date: 20190425
  Receipt Date: 20190425
  Transmission Date: 20190711
  Serious: Yes (Death, Hospitalization)
  Sender: FDA-Public Use
  Company Number: US-TEVA-2019-US-1042889

PATIENT
  Age: 78 Year
  Sex: Female
  Weight: 77.1 kg

DRUGS (9)
  1. ASPIRIN 81 MG [Concomitant]
     Active Substance: ASPIRIN
     Dosage: 81 MILLIGRAM DAILY;
     Route: 048
  2. TETRABENAZINE 25 MG [Concomitant]
     Active Substance: TETRABENAZINE
     Dosage: 75 MILLIGRAM DAILY;
     Route: 048
  3. EFFEXOR 75 MG XR [Concomitant]
     Dosage: 225 MILLIGRAM DAILY;
     Route: 048
  4. UNISOM 25 MG [Concomitant]
     Dosage: 25 MILLIGRAM DAILY; AT BEDTIME
     Route: 048
  5. SINEMET [Concomitant]
     Active Substance: CARBIDOPA\LEVODOPA
     Dosage: CARBIDOPA 25 MG + LEVODOPA 100 MG
     Route: 065
  6. GLUCOPHAGE [Concomitant]
     Active Substance: METFORMIN HYDROCHLORIDE
     Dosage: 500 MILLIGRAM DAILY;
     Route: 048
  7. AUSTEDO [Suspect]
     Active Substance: DEUTETRABENAZINE
     Indication: TARDIVE DYSKINESIA
     Dosage: DECREASED AUSTEDO TO 3 TIMES PER DAY ON 10-MAR-2019 THEN STOPPED
     Route: 048
  8. PRAVACHOL 40 MG [Concomitant]
     Dosage: 40 MILLIGRAM DAILY; NIGHTLY
     Route: 048
  9. DILTIAZEM HCL 125 MG [Concomitant]
     Dosage: 120 MILLIGRAM DAILY;
     Route: 048

REACTIONS (9)
  - Mood altered [Unknown]
  - Hallucination [Unknown]
  - Dry mouth [Unknown]
  - Confusional state [Unknown]
  - Dyskinesia [Unknown]
  - Death [Fatal]
  - Fluid intake reduced [Unknown]
  - Eating disorder [Unknown]
  - Asthenia [Unknown]

NARRATIVE: CASE EVENT DATE: 20190210
